FAERS Safety Report 20329646 (Version 2)
Quarter: 2022Q1

REPORT INFORMATION
  Report Type: Report from Study
  Country: AU (occurrence: AU)
  Receive Date: 20220112
  Receipt Date: 20220128
  Transmission Date: 20220424
  Serious: Yes (Hospitalization, Other)
  Sender: FDA-Public Use
  Company Number: AU-BRISTOL-MYERS SQUIBB COMPANY-BMS-2021-008891

PATIENT
  Age: 43 Year
  Sex: Female
  Weight: 78 kg

DRUGS (14)
  1. NIVOLUMAB [Suspect]
     Active Substance: NIVOLUMAB
     Indication: Gastric cancer
     Dosage: 480 MILLIGRAM
     Route: 042
     Dates: start: 20191003
  2. FLUOROURACIL [Suspect]
     Active Substance: FLUOROURACIL
     Indication: Gastric cancer
     Dosage: 740 MILLIGRAM
     Route: 040
     Dates: start: 20191003
  3. LEUCOVORIN CALCIUM [Suspect]
     Active Substance: LEUCOVORIN CALCIUM
     Indication: Gastric cancer
     Dosage: 50 MILLIGRAM
     Route: 065
     Dates: start: 20191003
  4. OXALIPLATIN [Suspect]
     Active Substance: OXALIPLATIN
     Indication: Gastric cancer
     Dosage: 155 MILLIGRAM
     Route: 065
     Dates: start: 20191003
  5. PANTOPRAZOLE [Concomitant]
     Active Substance: PANTOPRAZOLE
     Indication: Constipation
     Dosage: 40 MILLIGRAM
     Route: 048
     Dates: start: 20200619
  6. CYCLIZINE [Concomitant]
     Active Substance: CYCLIZINE
     Indication: Constipation
     Dosage: 50 MILLIGRAM
     Route: 048
     Dates: start: 20200324
  7. DOCUSATE SODIUM\SENNOSIDES A AND B [Concomitant]
     Active Substance: DOCUSATE SODIUM\SENNOSIDES A AND B
     Indication: Constipation
     Dosage: 1 DOSAGE FORM= 4 UNITS NOS
     Route: 048
     Dates: start: 20200324
  8. ACETAMINOPHEN [Concomitant]
     Active Substance: ACETAMINOPHEN
     Indication: Neuroendocrine tumour
     Dosage: 1 GRAM
     Route: 048
     Dates: start: 20200519
  9. HYDROCORTISONE [Concomitant]
     Active Substance: HYDROCORTISONE
     Indication: Adrenocorticotropic hormone deficiency
     Dosage: 16 MILLIGRAM
     Route: 048
     Dates: start: 20200923, end: 20210128
  10. SODIUM BICARBONATE [Concomitant]
     Active Substance: SODIUM BICARBONATE
     Indication: Oral candidiasis
     Dosage: 1 DOSAGE FORM= 1 UNIT NOS
     Route: 048
     Dates: start: 20200115
  11. MAXOLON [Concomitant]
     Active Substance: METOCLOPRAMIDE HYDROCHLORIDE
     Indication: Nausea
     Dosage: 10 MILLIGRAM
     Route: 048
     Dates: start: 20200219
  12. MAXOLON [Concomitant]
     Active Substance: METOCLOPRAMIDE HYDROCHLORIDE
     Indication: Vomiting
     Dosage: 30 MILLIGRAM
     Route: 048
     Dates: start: 20210708, end: 20210720
  13. GASTROSTOP [Concomitant]
     Indication: Diarrhoea
     Dosage: 2 MILLIGRAM
     Route: 048
     Dates: start: 20191008
  14. MOVICOL [Concomitant]
     Active Substance: POLYETHYLENE GLYCOL 3350\POTASSIUM CHLORIDE\SODIUM BICARBONATE\SODIUM CHLORIDE
     Indication: Product used for unknown indication
     Dosage: 1 DOSAGE FORM= 1 UNITS NOS
     Route: 048
     Dates: start: 20211118

REACTIONS (2)
  - Glucocorticoid deficiency [Not Recovered/Not Resolved]
  - Sepsis [Recovered/Resolved]

NARRATIVE: CASE EVENT DATE: 20210123
